FAERS Safety Report 20770341 (Version 1)
Quarter: 2022Q2

REPORT INFORMATION
  Report Type: Spontaneous
  Country: BR (occurrence: BR)
  Receive Date: 20220429
  Receipt Date: 20220429
  Transmission Date: 20220721
  Serious: Yes (Other)
  Sender: FDA-Public Use
  Company Number: BR-GILEAD-2022-0579760

PATIENT
  Age: 78 Year
  Sex: Female
  Weight: 118 kg

DRUGS (1)
  1. VEKLURY [Suspect]
     Active Substance: REMDESIVIR
     Indication: Product used for unknown indication
     Dosage: UNK
     Route: 065
     Dates: start: 2021

REACTIONS (3)
  - Septic shock [Unknown]
  - Blood creatine increased [Recovering/Resolving]
  - Electrocardiogram change [Recovering/Resolving]

NARRATIVE: CASE EVENT DATE: 20211020
